FAERS Safety Report 14685909 (Version 5)
Quarter: 2018Q2

REPORT INFORMATION
  Report Type: Spontaneous
  Country: AU (occurrence: AU)
  Receive Date: 20180327
  Receipt Date: 20180614
  Transmission Date: 20180711
  Serious: Yes (Death, Hospitalization, Other)
  Sender: FDA-Public Use
  Company Number: AU-BAYER-2018-058771

PATIENT
  Age: 56 Year
  Sex: Male
  Weight: 50 kg

DRUGS (2)
  1. THIAMINE. [Concomitant]
     Active Substance: THIAMINE
     Indication: PROPHYLAXIS
     Dosage: 100 MG, UNK
     Dates: start: 20180415
  2. NEXAVAR [Suspect]
     Active Substance: SORAFENIB
     Indication: HEPATOCELLULAR CARCINOMA
     Dosage: 160 MG, DAILY
     Route: 048
     Dates: start: 20180403, end: 20180417

REACTIONS (11)
  - Jaundice [Recovering/Resolving]
  - Sepsis [Fatal]
  - Confusional state [Recovering/Resolving]
  - Oedema peripheral [Recovering/Resolving]
  - Acute on chronic liver failure [Fatal]
  - Blood culture positive [Recovering/Resolving]
  - Bacterial test positive [Recovering/Resolving]
  - Hepatocellular carcinoma [None]
  - Pyrexia [Recovering/Resolving]
  - Ascites [Recovering/Resolving]
  - Hepatic cirrhosis [None]

NARRATIVE: CASE EVENT DATE: 20180414
